FAERS Safety Report 7450923-4 (Version None)
Quarter: 2011Q2

REPORT INFORMATION
  Report Type: 
  Country: None (occurrence: None)
  Receive Date: 20110502
  Receipt Date: 20110425
  Transmission Date: 20111010
  Serious: Yes (Hospitalization)
  Sender: FDA-Public Use
  Company Number: US-PFIZER INC-2011089445

PATIENT
  Sex: Female

DRUGS (3)
  1. AMLODIPINE BESILATE [Concomitant]
     Indication: HEART RATE IRREGULAR
     Dosage: UNK
  2. METOPROLOL [Concomitant]
     Indication: HYPERTENSION
     Dosage: UNK
  3. SUTENT [Suspect]
     Indication: METASTATIC RENAL CELL CARCINOMA
     Dosage: 25 MG, UNK
     Dates: start: 20110127

REACTIONS (2)
  - DYSPNOEA [None]
  - SWOLLEN TONGUE [None]
